FAERS Safety Report 20907783 (Version 2)
Quarter: 2022Q2

REPORT INFORMATION
  Report Type: Report from Study
  Country: KR (occurrence: KR)
  Receive Date: 20220602
  Receipt Date: 20220608
  Transmission Date: 20220720
  Serious: Yes (Hospitalization, Other)
  Sender: FDA-Public Use
  Company Number: KR-ONO-2022KR014236

PATIENT
  Age: 76 Year
  Sex: Male
  Weight: 58.5 kg

DRUGS (18)
  1. CAPECITABINE [Suspect]
     Active Substance: CAPECITABINE
     Indication: Gastric cancer
     Dosage: MOST RECENT DOSE OF 1200 MG/M2 WAS RECEIVED  ON 03-MAY-2022.
     Route: 048
     Dates: start: 20220228
  2. OXALIPLATIN [Suspect]
     Active Substance: OXALIPLATIN
     Indication: Gastric cancer
     Dosage: MOST RECENT DOSE WAS ON 11-APR-2022
     Route: 042
     Dates: start: 20220228
  3. HUROFIX [Concomitant]
     Indication: Product used for unknown indication
     Dosage: UNK
     Route: 065
  4. PREDNISOLONE [Concomitant]
     Active Substance: PREDNISOLONE
     Indication: Diabetes mellitus
     Route: 065
     Dates: start: 20220120
  5. LASIX [Concomitant]
     Active Substance: FUROSEMIDE
     Indication: Benign prostatic hyperplasia
     Route: 065
     Dates: start: 20220120
  6. OXYCONTIN [Concomitant]
     Active Substance: OXYCODONE HYDROCHLORIDE
     Indication: Gastric cancer
     Route: 065
     Dates: start: 20220502
  7. OXYCONTIN [Concomitant]
     Active Substance: OXYCODONE HYDROCHLORIDE
     Indication: Abdominal pain
  8. HISTAL [Concomitant]
     Indication: Gastric cancer
     Route: 065
     Dates: start: 20220222
  9. MACPERAN [METOCLOPRAMIDE] [Concomitant]
     Indication: Product used for unknown indication
     Dosage: UNK
     Route: 065
  10. EPIUM [Concomitant]
     Indication: Product used for unknown indication
     Dosage: UNK
     Route: 065
  11. HEXAMIDINE [Concomitant]
     Active Substance: HEXAMIDINE
     Indication: Product used for unknown indication
     Dosage: UNK
     Route: 065
  12. OXYCODONE HYDROCHLORIDE [Concomitant]
     Active Substance: OXYCODONE HYDROCHLORIDE
     Indication: Product used for unknown indication
     Dosage: UNK
     Route: 065
  13. LOPMIN [Concomitant]
     Indication: Product used for unknown indication
     Dosage: UNK
     Route: 065
  14. HANMI TAMS OD [Concomitant]
     Indication: Product used for unknown indication
     Dosage: UNK
     Route: 065
  15. MEDILAC DS [Concomitant]
     Indication: Product used for unknown indication
     Dosage: UNK
     Route: 065
  16. GLICOVER [Concomitant]
     Indication: Product used for unknown indication
     Dosage: UNK
     Route: 065
  17. HERBALS [Concomitant]
     Active Substance: HERBALS
     Indication: Product used for unknown indication
     Dosage: UNK
     Route: 065
  18. AXID [NIZATIDINE] [Concomitant]
     Indication: Product used for unknown indication
     Dosage: UNK
     Route: 065

REACTIONS (1)
  - Pneumomediastinum [Recovering/Resolving]

NARRATIVE: CASE EVENT DATE: 20220517
